FAERS Safety Report 7675837-6 (Version None)
Quarter: 2011Q3

REPORT INFORMATION
  Report Type: 
  Country: None (occurrence: None)
  Receive Date: 20110810
  Receipt Date: 20110728
  Transmission Date: 20111222
  Serious: Yes (Hospitalization)
  Sender: FDA-Public Use
  Company Number: BE-MYLANLABS-2011S1015887

PATIENT
  Age: 24 Year
  Sex: Male

DRUGS (3)
  1. CLOZAPINE [Suspect]
     Indication: PSYCHOTIC DISORDER
     Dosage: STARTED AT 25 MG/DAY WITH A GRADUAL INCREASE TO 250 MG/DAY
     Route: 065
  2. QUETIAPINE [Concomitant]
     Indication: PSYCHOTIC DISORDER
     Dosage: UP TO 800 MG/DAY IN DECREASING DOSES PRIOR TO CLOZAPINE
     Route: 065
  3. ASPIRIN [Concomitant]
     Indication: HEADACHE
     Dosage: 3 G/DAY
     Route: 065

REACTIONS (3)
  - CARDIOGENIC SHOCK [None]
  - MYOCARDITIS [None]
  - CONGESTIVE CARDIOMYOPATHY [None]
